FAERS Safety Report 17798273 (Version 3)
Quarter: 2020Q2

REPORT INFORMATION
  Report Type: Report from Study
  Country: JP (occurrence: JP)
  Receive Date: 20200518
  Receipt Date: 20200603
  Transmission Date: 20200714
  Serious: Yes (Other)
  Sender: FDA-Public Use
  Company Number: JP-JNJFOC-20200513661

PATIENT
  Age: 6 Month
  Sex: Male

DRUGS (3)
  1. LIMETHASON /00016008/ [Suspect]
     Active Substance: DEXAMETHASONE PALMITATE
     Indication: PRODUCT USED FOR UNKNOWN INDICATION
     Route: 042
  2. AZANIN [Suspect]
     Active Substance: AZATHIOPRINE
     Indication: PRODUCT USED FOR UNKNOWN INDICATION
     Route: 048
  3. REMICADE [Suspect]
     Active Substance: INFLIXIMAB
     Indication: INFLAMMATORY BOWEL DISEASE
     Route: 042

REACTIONS (4)
  - Off label use [Unknown]
  - Infection [Unknown]
  - Device related infection [Unknown]
  - Product use issue [Unknown]
